FAERS Safety Report 7764560-5 (Version None)
Quarter: 2011Q3

REPORT INFORMATION
  Report Type: 
  Country: None (occurrence: None)
  Receive Date: 20110921
  Receipt Date: 20110915
  Transmission Date: 20111222
  Serious: Yes (Other)
  Sender: FDA-Public Use
  Company Number: US-PFIZER INC-2011218786

PATIENT
  Sex: Female
  Weight: 81.63 kg

DRUGS (2)
  1. DILANTIN [Suspect]
     Indication: EPILEPSY
     Dosage: 100 MG, 2X/DAY
     Route: 048
  2. DILANTIN [Suspect]
     Dosage: 100 MG, 3X/DAY
     Route: 048

REACTIONS (3)
  - SPINAL FRACTURE [None]
  - STEVENS-JOHNSON SYNDROME [None]
  - ANTICONVULSANT DRUG LEVEL BELOW THERAPEUTIC [None]
